FAERS Safety Report 4714335-6 (Version None)
Quarter: 2005Q3

REPORT INFORMATION
  Report Type: 
  Country: None (occurrence: None)
  Receive Date: 20050714
  Receipt Date: 20041202
  Transmission Date: 20060218
  Serious: Yes (Hospitalization, Other)
  Sender: FDA-Public Use
  Company Number: 200419281US

PATIENT
  Sex: Male
  Weight: 81.8 kg

DRUGS (12)
  1. LOVENOX [Suspect]
     Indication: CARDIAC VALVE DISEASE
     Route: 051
     Dates: start: 20041113, end: 20041115
  2. LOVENOX [Suspect]
     Indication: HERNIA REPAIR
     Route: 051
     Dates: start: 20041113, end: 20041115
  3. COUMADIN [Concomitant]
     Dosage: DOSE: UNK
  4. ANTIHYPERTENSIVES [Concomitant]
     Indication: HYPERTENSION
     Dosage: DOSE: UNK
  5. SERUMLIPIDREDUCING AGENTS [Concomitant]
     Indication: BLOOD CHOLESTEROL INCREASED
     Dosage: DOSE: UNK
  6. PROTONIX [Concomitant]
     Dosage: DOSE: UNK
  7. MICARDIS [Concomitant]
  8. DEPAKOTE [Concomitant]
  9. ALLOPURINOL [Concomitant]
  10. LOVASTATIN [Concomitant]
     Dosage: DOSE: UNK
  11. PROTONIX [Concomitant]
  12. ATENOLOL [Concomitant]

REACTIONS (7)
  - HAEMATOMA [None]
  - HYPERHIDROSIS [None]
  - HYPOTENSION [None]
  - INCISION SITE HAEMORRHAGE [None]
  - NERVE INJURY [None]
  - OPERATIVE HAEMORRHAGE [None]
  - PALLOR [None]
